FAERS Safety Report 7639991-4 (Version None)
Quarter: 2011Q3

REPORT INFORMATION
  Report Type: 
  Country: None (occurrence: None)
  Receive Date: 20110727
  Receipt Date: 20110711
  Transmission Date: 20111222
  Serious: No
  Sender: FDA-Public Use
  Company Number: US-B.I. PHARMACEUTICALS,INC./RIDGEFIELD-2011-BP-17435BP

PATIENT
  Age: 82 Year
  Sex: Male

DRUGS (5)
  1. METFORMIN HCL [Concomitant]
     Indication: DIABETES MELLITUS
     Dates: start: 20050101
  2. AVODART [Concomitant]
     Indication: BENIGN PROSTATIC HYPERPLASIA
     Dates: start: 20070101
  3. GLUCOPHAGE [Concomitant]
     Indication: DIABETES MELLITUS
     Dates: start: 20050101
  4. SPIRIVA [Suspect]
     Indication: CHRONIC OBSTRUCTIVE PULMONARY DISEASE
     Dosage: 18 MG
     Route: 055
     Dates: start: 20110705
  5. BENICAR [Concomitant]
     Indication: HYPERTENSION
     Dates: start: 20050101

REACTIONS (1)
  - VISUAL IMPAIRMENT [None]
